FAERS Safety Report 4979981-3 (Version None)
Quarter: 2006Q2

REPORT INFORMATION
  Report Type: 
  Country: None (occurrence: None)
  Receive Date: 20060421
  Receipt Date: 20050721
  Transmission Date: 20061013
  Serious: Yes (Death, Hospitalization, Disabling)
  Sender: FDA-Public Use
  Company Number: US-MERCK-0507USA03359

PATIENT
  Age: 52 Year
  Sex: Female
  Weight: 55 kg

DRUGS (32)
  1. RELAFEN [Concomitant]
     Route: 065
  2. TRIMETHOPRIM [Concomitant]
     Route: 065
  3. ZITHROMAX [Concomitant]
     Route: 065
  4. ZYRTEC [Concomitant]
     Route: 065
  5. VIOXX [Suspect]
     Indication: ARTHRITIS
     Route: 048
     Dates: start: 20000401, end: 20030814
  6. ACYCLOVIR [Concomitant]
     Route: 065
  7. AGGRENOX [Concomitant]
     Route: 065
  8. VENTOLIN [Concomitant]
     Route: 065
  9. ARAVA [Concomitant]
     Route: 065
  10. BIAXIN [Concomitant]
     Route: 065
  11. CLARITIN [Concomitant]
     Route: 065
  12. CYCLOBENZAPRINE HYDROCHLORIDE [Concomitant]
     Route: 065
  13. ESTRATAB [Concomitant]
     Route: 065
  14. FLUOXETINE [Concomitant]
     Route: 065
  15. FOSAMAX [Concomitant]
     Route: 065
  16. GUAIFENESIN [Concomitant]
     Route: 065
  17. CLORAZEPATE DIPOTASSIUM [Concomitant]
     Route: 065
  18. HYDROCODONE HYDROCHLORIDE [Concomitant]
     Route: 065
     Dates: start: 20021212, end: 20030814
  19. LIPITOR [Concomitant]
     Route: 065
     Dates: start: 19970101, end: 20021119
  20. LOTENSIN [Concomitant]
     Route: 065
  21. MENEST [Concomitant]
     Route: 065
  22. METHOTREXATE [Concomitant]
     Route: 065
     Dates: start: 20020101
  23. MEPREDNISONE [Concomitant]
     Route: 065
  24. NASONEX [Concomitant]
     Route: 065
  25. OMNICEF [Concomitant]
     Route: 065
  26. OXYCONTIN [Concomitant]
     Route: 065
  27. PROZAC [Concomitant]
     Route: 065
  28. PREDNISONE [Concomitant]
     Route: 065
     Dates: start: 20020101, end: 20050101
  29. PREVACID [Concomitant]
     Route: 065
  30. PRILOSEC [Concomitant]
     Route: 065
  31. PROMETHAZINE [Concomitant]
     Route: 065
  32. PROPOXYPHENE HYDROCHLORIDE [Concomitant]
     Route: 065
     Dates: start: 19960101, end: 20030101

REACTIONS (30)
  - AORTIC VALVE INCOMPETENCE [None]
  - ARTERIOSCLEROSIS [None]
  - ASTHENIA [None]
  - CARDIAC FAILURE CONGESTIVE [None]
  - CARDIO-RESPIRATORY ARREST [None]
  - CEREBROVASCULAR ACCIDENT [None]
  - CHRONIC OBSTRUCTIVE PULMONARY DISEASE [None]
  - DILATATION ATRIAL [None]
  - DILATATION VENTRICULAR [None]
  - DUODENITIS [None]
  - DYSPNOEA [None]
  - FACIAL PALSY [None]
  - GASTRITIS [None]
  - GASTROOESOPHAGEAL REFLUX DISEASE [None]
  - HAEMATOCHEZIA [None]
  - HEMIPARESIS [None]
  - HIATUS HERNIA [None]
  - INJURY [None]
  - MITRAL VALVE INCOMPETENCE [None]
  - MYOCARDIAL INFARCTION [None]
  - NAUSEA [None]
  - OEDEMA PERIPHERAL [None]
  - OESOPHAGITIS [None]
  - PROTEINURIA [None]
  - RENAL FAILURE ACUTE [None]
  - RENAL IMPAIRMENT [None]
  - SUDDEN CARDIAC DEATH [None]
  - TRICUSPID VALVE INCOMPETENCE [None]
  - VENTRICULAR TACHYCARDIA [None]
  - VOMITING [None]
